FAERS Safety Report 6115560-2 (Version None)
Quarter: 2009Q1

REPORT INFORMATION
  Report Type: 
  Country: None (occurrence: None)
  Receive Date: 20090313
  Receipt Date: 20090305
  Transmission Date: 20090719
  Serious: Yes (Hospitalization)
  Sender: FDA-Public Use
  Company Number: PHHY2008FR24031

PATIENT
  Age: 81 Year
  Sex: Female

DRUGS (9)
  1. EXJADE [Suspect]
     Indication: HAEMOCHROMATOSIS
     Dosage: 500 MG, QD
     Dates: start: 20080410, end: 20080828
  2. EXJADE [Suspect]
     Indication: REFRACTORY ANAEMIA
  3. ESOMEPRAZOLE [Concomitant]
  4. METFORMIN HCL [Concomitant]
  5. GINKOR FORT [Concomitant]
  6. TRAMADOL HCL [Concomitant]
  7. FOZITEC [Concomitant]
  8. TEMERIT [Concomitant]
  9. LASIX [Concomitant]
     Indication: HYPERTENSION
     Dosage: 20 MG PER DAY
     Route: 048

REACTIONS (16)
  - ABDOMINAL PAIN [None]
  - BLOOD AMYLASE INCREASED [None]
  - BLOOD BILIRUBIN INCREASED [None]
  - C-REACTIVE PROTEIN INCREASED [None]
  - CHOLECYSTECTOMY [None]
  - CHOLELITHIASIS [None]
  - FLATULENCE [None]
  - GAMMA-GLUTAMYLTRANSFERASE INCREASED [None]
  - HAEMOGLOBIN DECREASED [None]
  - HEPATOMEGALY [None]
  - JAUNDICE [None]
  - LEUKOCYTOSIS [None]
  - LIPASE INCREASED [None]
  - NAUSEA [None]
  - PANCREATITIS ACUTE [None]
  - TRANSFUSION [None]
